FAERS Safety Report 11630575 (Version 1)
Quarter: 2015Q4

REPORT INFORMATION
  Report Type: Spontaneous
  Country: US (occurrence: US)
  Receive Date: 20151014
  Receipt Date: 20151014
  Transmission Date: 20160304
  Serious: No
  Sender: FDA-Public Use
  Company Number: US-UNICHEM LABORATORIES LIMITED-UCM201508-000639

PATIENT
  Age: 56 Year
  Sex: Female
  Weight: 74.38 kg

DRUGS (1)
  1. HYDROCHLOROTHIAZIDE. [Suspect]
     Active Substance: HYDROCHLOROTHIAZIDE
     Indication: HYPERTENSION

REACTIONS (8)
  - Headache [Recovering/Resolving]
  - Joint swelling [Recovering/Resolving]
  - Diarrhoea [Recovering/Resolving]
  - Gait disturbance [Recovering/Resolving]
  - Contusion [Recovering/Resolving]
  - Delirium [Recovering/Resolving]
  - Nausea [Recovering/Resolving]
  - Fatigue [Recovering/Resolving]

NARRATIVE: CASE EVENT DATE: 201505
